FAERS Safety Report 21224646 (Version 3)
Quarter: 2024Q2

REPORT INFORMATION
  Report Type: Spontaneous
  Country: US (occurrence: US)
  Receive Date: 20220817
  Receipt Date: 20240628
  Transmission Date: 20240715
  Serious: Yes (Hospitalization)
  Sender: FDA-Public Use
  Company Number: US-OTSUKA-2021_033940

PATIENT
  Sex: Male

DRUGS (3)
  1. ABILIFY [Suspect]
     Active Substance: ARIPIPRAZOLE
     Indication: Bipolar disorder
     Dosage: 5 MG
     Route: 065
     Dates: start: 2004, end: 2019
  2. ABILIFY MAINTENA [Suspect]
     Active Substance: ARIPIPRAZOLE
     Indication: Product used for unknown indication
     Dosage: UNK
     Route: 065
  3. ARIPIPRAZOLE [Suspect]
     Active Substance: ARIPIPRAZOLE
     Indication: Product used for unknown indication
     Dosage: UNK
     Route: 065

REACTIONS (13)
  - Lymphadenopathy [Recovered/Resolved]
  - Swelling [Recovered/Resolved]
  - Behaviour disorder [Unknown]
  - Malaise [Unknown]
  - Anger [Unknown]
  - Tremor [Unknown]
  - Therapeutic response shortened [Unknown]
  - Underdose [Unknown]
  - Loss of employment [Unknown]
  - Insurance issue [Unknown]
  - Inability to afford medication [Unknown]
  - Therapy cessation [Unknown]
  - Imprisonment [Recovered/Resolved]
